FAERS Safety Report 8902559 (Version 3)
Quarter: 2012Q4

REPORT INFORMATION
  Report Type: 
  Country: US (occurrence: US)
  Receive Date: 20121112
  Receipt Date: 20121221
  Transmission Date: 20130627
  Serious: Yes (Other)
  Sender: FDA-Public Use
  Company Number: US-PFIZER INC-2012280334

PATIENT
  Age: 83 Year
  Sex: Female
  Weight: 49.4 kg

DRUGS (13)
  1. LIPITOR [Suspect]
     Indication: HIGH CHOLESTEROL
     Dosage: 20 mg, daily
     Route: 048
  2. LIPITOR [Suspect]
     Dosage: UNK
  3. ACCUPRIL [Suspect]
     Indication: BLOOD PRESSURE HIGH
     Dosage: UNK
     Route: 048
     Dates: end: 20120827
  4. GLUCOTROL XL [Concomitant]
     Indication: DIABETES
     Dosage: 10 mg, 2x/day
  5. METFORMIN [Concomitant]
     Indication: DIABETES
     Dosage: 500 mg, 2x/day
  6. JANUVIA [Concomitant]
     Indication: DIABETES
     Dosage: 100 mg, UNK
  7. MAGNESIUM [Concomitant]
     Dosage: UNK
  8. CARVEDILOL [Concomitant]
     Dosage: 12.5 mg, UNK
  9. FUROSEMIDE [Concomitant]
     Dosage: 20 mg, UNK
  10. PANTOPRAZOLE [Concomitant]
     Dosage: 40 mg, UNK
  11. AMIODARONE [Concomitant]
     Dosage: 200 mg, UNK
  12. LISINOPRIL [Concomitant]
     Dosage: UNK
  13. WARFARIN [Concomitant]
     Dosage: UNK

REACTIONS (1)
  - Cardiac valve disease [Recovered/Resolved]
